FAERS Safety Report 5283962-2 (Version None)
Quarter: 2007Q1

REPORT INFORMATION
  Report Type: 
  Country: None (occurrence: None)
  Receive Date: 20070327
  Receipt Date: 20070321
  Transmission Date: 20070707
  Serious: Yes (Death)
  Sender: FDA-Public Use
  Company Number: 238710

PATIENT
  Age: 16 Year
  Sex: Female

DRUGS (1)
  1. XOLAIR [Suspect]

REACTIONS (1)
  - ASTHMA [None]
